FAERS Safety Report 7968314-6 (Version None)
Quarter: 2011Q4

REPORT INFORMATION
  Report Type: 
  Country: None (occurrence: None)
  Receive Date: 20111209
  Receipt Date: 20111207
  Transmission Date: 20120403
  Serious: Yes (Other)
  Sender: FDA-Public Use
  Company Number: PHHO2011DE08666

PATIENT
  Sex: Male
  Weight: 89 kg

DRUGS (1)
  1. FTY [Suspect]
     Indication: MULTIPLE SCLEROSIS
     Dosage: 1.25 OR 0.5 MG
     Route: 048
     Dates: start: 20110325

REACTIONS (1)
  - BASAL CELL CARCINOMA [None]
